FAERS Safety Report 9045614 (Version 1)
Quarter: 2013Q1

REPORT INFORMATION
  Report Type: Report from Study
  Country: US (occurrence: US)
  Receive Date: 20130131
  Receipt Date: 20130131
  Transmission Date: 20140127
  Serious: No
  Sender: FDA-Public Use
  Company Number: US-ABBOTT-12P-163-1010616-00

PATIENT
  Age: 48 Year
  Sex: Female

DRUGS (11)
  1. HUMIRA [Suspect]
     Indication: CROHN^S DISEASE
     Dosage: 80MG; ONE HALF LOADING DOSE ONLY
     Dates: start: 20121115
  2. BUSPIRONE [Concomitant]
     Indication: ANXIETY
     Dosage: 10MG DAILY
  3. TOPAMATE [Concomitant]
     Indication: HEADACHE
     Dosage: 6.25MG DAILY
  4. DESIPRAMINE [Concomitant]
     Indication: DEPRESSION
     Dosage: 12.5MG DAILY
  5. ACIPHEX [Concomitant]
     Indication: GASTROOESOPHAGEAL REFLUX DISEASE
  6. TYLENOL [Concomitant]
     Indication: PAIN
  7. FLAGYL [Concomitant]
     Indication: CROHN^S DISEASE
  8. FLAVOXATE [Concomitant]
     Indication: POLLAKIURIA
  9. VIVELLE-DOT [Concomitant]
     Indication: HORMONE REPLACEMENT THERAPY
  10. ZANTAC [Concomitant]
     Indication: GASTROOESOPHAGEAL REFLUX DISEASE
  11. CIPRO [Concomitant]
     Indication: CROHN^S DISEASE

REACTIONS (8)
  - Sneezing [Not Recovered/Not Resolved]
  - Nausea [Not Recovered/Not Resolved]
  - Rhinorrhoea [Not Recovered/Not Resolved]
  - Diarrhoea [Not Recovered/Not Resolved]
  - Injection site pain [Not Recovered/Not Resolved]
  - Injection site warmth [Not Recovered/Not Resolved]
  - Injection site haemorrhage [Not Recovered/Not Resolved]
  - Injection site pruritus [Not Recovered/Not Resolved]
